FAERS Safety Report 11816999 (Version 6)
Quarter: 2017Q2

REPORT INFORMATION
  Report Type: Spontaneous
  Country: US (occurrence: US)
  Receive Date: 20151210
  Receipt Date: 20170630
  Transmission Date: 20170829
  Serious: No
  Sender: FDA-Public Use
  Company Number: US-JNJFOC-20151118010

PATIENT
  Age: 7 Year
  Sex: Male

DRUGS (3)
  1. RISPERDAL [Suspect]
     Active Substance: RISPERIDONE
     Indication: ATTENTION DEFICIT/HYPERACTIVITY DISORDER
     Dosage: 0.5 MG TO 1 MG
     Route: 048
     Dates: end: 20120224
  2. RISPERDAL [Suspect]
     Active Substance: RISPERIDONE
     Indication: ATTENTION DEFICIT/HYPERACTIVITY DISORDER
     Dosage: 0.5 - 1 MG
     Route: 048
     Dates: start: 200609
  3. RISPERDAL [Suspect]
     Active Substance: RISPERIDONE
     Indication: ATTENTION DEFICIT/HYPERACTIVITY DISORDER
     Dosage: 0.5 MG TO 1 MG
     Route: 048
     Dates: start: 20100407, end: 20111117

REACTIONS (6)
  - Gynaecomastia [Unknown]
  - Product use in unapproved indication [Unknown]
  - Vision blurred [Unknown]
  - Obesity [Unknown]
  - Abnormal sensation in eye [Unknown]
  - Off label use [Unknown]

NARRATIVE: CASE EVENT DATE: 200609
